FAERS Safety Report 11906056 (Version 1)
Quarter: 2016Q1

REPORT INFORMATION
  Report Type: Spontaneous
  Country: US (occurrence: None)
  Receive Date: 20160108
  Receipt Date: 20160108
  Transmission Date: 20160526
  Serious: Yes (Hospitalization)
  Sender: FDA-Public Use
  Company Number: None

PATIENT
  Sex: Female
  Weight: 69.4 kg

DRUGS (3)
  1. PACE MAKER [Concomitant]
  2. XARELTO [Concomitant]
     Active Substance: RIVAROXABAN
  3. LOSARTAN. [Suspect]
     Active Substance: LOSARTAN
     Indication: BLOOD PRESSURE MEASUREMENT
     Dosage: 2 PILLS MORNING + NIGHT
     Route: 048
     Dates: start: 2013

REACTIONS (2)
  - Adverse event [None]
  - Dyspnoea [None]

NARRATIVE: CASE EVENT DATE: 20151001
